FAERS Safety Report 11932415 (Version 2)
Quarter: 2016Q1

REPORT INFORMATION
  Report Type: Spontaneous
  Country: JP (occurrence: JP)
  Receive Date: 20160120
  Receipt Date: 20160229
  Transmission Date: 20160526
  Serious: Yes (Other)
  Sender: FDA-Public Use
  Company Number: PHJP2016JP001208

PATIENT
  Age: 71 Year
  Sex: Male

DRUGS (1)
  1. DESFERAL [Suspect]
     Active Substance: DEFEROXAMINE MESYLATE
     Indication: IRON OVERLOAD
     Dosage: 1000 MG, QD (2 VIALS)
     Route: 030
     Dates: start: 20160104

REACTIONS (2)
  - Neutrophil percentage decreased [Unknown]
  - White blood cell count decreased [Unknown]
